FAERS Safety Report 15815203 (Version 2)
Quarter: 2019Q1

REPORT INFORMATION
  Report Type: Spontaneous
  Country: IT (occurrence: IT)
  Receive Date: 20190112
  Receipt Date: 20190318
  Transmission Date: 20190417
  Serious: Yes (Other)
  Sender: FDA-Public Use
  Company Number: IT-ACCORD-101522

PATIENT
  Age: 69 Year
  Sex: Male

DRUGS (4)
  1. METHADONE [Concomitant]
     Active Substance: METHADONE HYDROCHLORIDE
     Indication: DRUG DEPENDENCE
     Route: 048
     Dates: start: 20170101
  2. MIRTAZAPINE. [Concomitant]
     Active Substance: MIRTAZAPINE
     Indication: AFFECTIVE DISORDER
     Route: 048
     Dates: start: 20170101
  3. DEPAKIN [Concomitant]
     Active Substance: VALPROATE SODIUM
     Indication: AFFECTIVE DISORDER
     Dates: start: 20170101
  4. QUETIAPINE. [Suspect]
     Active Substance: QUETIAPINE
     Indication: HYPNOTHERAPY
     Route: 048
     Dates: start: 20180314, end: 20180316

REACTIONS (4)
  - Extrapyramidal disorder [Recovering/Resolving]
  - IVth nerve disorder [Recovering/Resolving]
  - Dyskinesia [Recovering/Resolving]
  - Off label use [Unknown]

NARRATIVE: CASE EVENT DATE: 20180314
